FAERS Safety Report 12314875 (Version 1)
Quarter: 2016Q2

REPORT INFORMATION
  Report Type: Spontaneous
  Country: CO (occurrence: CO)
  Receive Date: 20160428
  Receipt Date: 20160428
  Transmission Date: 20160815
  Serious: Yes (Hospitalization)
  Sender: FDA-Public Use
  Company Number: CO-PFIZER INC-2016231431

PATIENT
  Age: 12 Year
  Sex: Male

DRUGS (1)
  1. ADVIL GRIPA [Suspect]
     Active Substance: CHLORPHENIRAMINE MALEATE\IBUPROFEN\PHENYLEPHRINE HYDROCHLORIDE
     Indication: INFLUENZA

REACTIONS (2)
  - Malaise [Unknown]
  - Pancreatitis acute [Unknown]
